FAERS Safety Report 8555703-4 (Version None)
Quarter: 2012Q3

REPORT INFORMATION
  Report Type: 
  Country: None (occurrence: None)
  Receive Date: 20120801
  Receipt Date: 20120719
  Transmission Date: 20120928
  Serious: Yes (Hospitalization, Other)
  Sender: FDA-Public Use
  Company Number: TR-AMGEN-TURSP2012046763

PATIENT
  Sex: Female

DRUGS (1)
  1. ENBREL [Suspect]
     Indication: RHEUMATOID ARTHRITIS
     Dosage: 50 MG, WEEKLY
     Route: 058
     Dates: start: 20110702

REACTIONS (5)
  - HEART VALVE INCOMPETENCE [None]
  - GAIT DISTURBANCE [None]
  - CARDIAC DISORDER [None]
  - ERYTHEMA [None]
  - ASTHENIA [None]
